FAERS Safety Report 5530571-3 (Version None)
Quarter: 2007Q4

REPORT INFORMATION
  Report Type: 
  Country: None (occurrence: None)
  Receive Date: 20071130
  Receipt Date: 20071128
  Transmission Date: 20080405
  Serious: Yes (Death, Hospitalization, Other)
  Sender: FDA-Public Use
  Company Number: FR-BRISTOL-MYERS SQUIBB COMPANY-13978689

PATIENT
  Age: 6 Decade
  Sex: Female

DRUGS (3)
  1. SPRYCEL [Suspect]
     Indication: CHRONIC MYELOID LEUKAEMIA
     Dates: start: 20071024
  2. ARACYTINE [Concomitant]
  3. DAUNORUBICIN [Concomitant]

REACTIONS (5)
  - CEREBRAL HAEMORRHAGE [None]
  - FALL [None]
  - MALAISE [None]
  - OEDEMA [None]
  - TOXIC SKIN ERUPTION [None]
